FAERS Safety Report 4602417-9 (Version None)
Quarter: 2005Q1

REPORT INFORMATION
  Report Type: 
  Country: None (occurrence: None)
  Receive Date: 20050307
  Receipt Date: 20050223
  Transmission Date: 20050727
  Serious: Yes (Hospitalization)
  Sender: FDA-Public Use
  Company Number: 200510786BCC

PATIENT
  Age: 51 Year
  Sex: Male
  Weight: 99.7913 kg

DRUGS (4)
  1. ALEVE [Suspect]
     Indication: HEADACHE
     Dosage: 220 MG, ONCE, ORAL
     Route: 048
     Dates: start: 20040701
  2. INSULIN [Concomitant]
  3. MEDICATION FOR HIGH BLOOD [Concomitant]
  4. MEDICATION FOR DIABETES [Concomitant]

REACTIONS (4)
  - BLINDNESS UNILATERAL [None]
  - CEREBRAL THROMBOSIS [None]
  - CEREBROVASCULAR ACCIDENT [None]
  - HEMIPLEGIA [None]
